FAERS Safety Report 25688377 (Version 2)
Quarter: 2025Q3

REPORT INFORMATION
  Report Type: Report from Study
  Country: US (occurrence: US)
  Receive Date: 20250818
  Receipt Date: 20250908
  Transmission Date: 20251021
  Serious: No
  Sender: JOHNSON AND JOHNSON
  Company Number: US-JNJFOC-20250803468

PATIENT
  Age: 19 Year
  Sex: Male

DRUGS (1)
  1. TREMFYA [Suspect]
     Active Substance: GUSELKUMAB
     Indication: Crohn^s disease
     Route: 058
     Dates: start: 20250803

REACTIONS (4)
  - Device deployment issue [Unknown]
  - Incorrect dose administered [Unknown]
  - Surgery [Unknown]
  - Adverse event [Unknown]

NARRATIVE: CASE EVENT DATE: 20250803
